FAERS Safety Report 15247547 (Version 1)
Quarter: 2018Q3

REPORT INFORMATION
  Report Type: Spontaneous
  Country: US (occurrence: US)
  Receive Date: 20180807
  Receipt Date: 20180807
  Transmission Date: 20181010
  Serious: Yes (Death, Life-Threatening, Hospitalization, Other)
  Sender: FDA-Public Use
  Company Number: US-HIKMA PHARMACEUTICALS USA INC.-US-H14001-18-06307

PATIENT
  Age: 35 Year
  Sex: Male

DRUGS (2)
  1. MILRINONE [Concomitant]
     Active Substance: MILRINONE
     Indication: BLOOD PRESSURE FLUCTUATION
     Route: 065
  2. AMIODARONE [Suspect]
     Active Substance: AMIODARONE
     Indication: VENTRICULAR TACHYCARDIA
     Route: 065

REACTIONS (5)
  - Thyrotoxic crisis [Fatal]
  - Cardiac failure chronic [None]
  - Multiple organ dysfunction syndrome [Fatal]
  - Thyroiditis [Recovering/Resolving]
  - Cardiogenic shock [Fatal]
